FAERS Safety Report 26182124 (Version 1)
Quarter: 2025Q4

REPORT INFORMATION
  Report Type: Spontaneous
  Country: GB (occurrence: GB)
  Receive Date: 20251221
  Receipt Date: 20251221
  Transmission Date: 20260117
  Serious: Yes (Other)
  Sender: GLENMARK
  Company Number: GB-GLENMARK PHARMACEUTICALS-2025GMK106757

PATIENT
  Age: 74 Year
  Sex: Male

DRUGS (1)
  1. OMEPRAZOLE [Suspect]
     Active Substance: OMEPRAZOLE
     Indication: Diarrhoea
     Dosage: 20 MILLIGRAM, BID
     Route: 065

REACTIONS (3)
  - Crowned dens syndrome [Recovered/Resolved]
  - Hypomagnesaemia [Unknown]
  - Hypocalcaemia [Unknown]
